FAERS Safety Report 24201964 (Version 1)
Quarter: 2024Q3

REPORT INFORMATION
  Report Type: Spontaneous
  Country: US (occurrence: US)
  Receive Date: 20240812
  Receipt Date: 20240812
  Transmission Date: 20241017
  Serious: Yes (Disabling, Other)
  Sender: BAUSCH AND LOMB
  Company Number: US-BAUSCH-BL-2024-012046

PATIENT
  Age: 28 Year
  Sex: Female

DRUGS (1)
  1. ELIDEL [Suspect]
     Active Substance: PIMECROLIMUS
     Indication: Product used for unknown indication
     Route: 065

REACTIONS (24)
  - Physical disability [Unknown]
  - Emotional disorder [Unknown]
  - Metastasis [Unknown]
  - Blood disorder [Unknown]
  - Rheumatoid arthritis [Unknown]
  - Hypothyroidism [Unknown]
  - Neuropathy peripheral [Unknown]
  - Quality of life decreased [Unknown]
  - Tooth loss [Unknown]
  - Alopecia [Unknown]
  - Endocrine disorder [Unknown]
  - Musculoskeletal disorder [Unknown]
  - Full blood count abnormal [Unknown]
  - Fibromyalgia [Unknown]
  - Brain fog [Unknown]
  - Goitre [Unknown]
  - Fatigue [Unknown]
  - Paraesthesia [Unknown]
  - Musculoskeletal pain [Unknown]
  - Vitamin D deficiency [Unknown]
  - Allodynia [Unknown]
  - Depression [Unknown]
  - Anger [Unknown]
  - Social avoidant behaviour [Unknown]
